FAERS Safety Report 10162598 (Version 2)
Quarter: 2014Q2

REPORT INFORMATION
  Report Type: Report from Study
  Country: TR (occurrence: TR)
  Receive Date: 20140509
  Receipt Date: 20140613
  Transmission Date: 20141212
  Serious: Yes (Other)
  Sender: FDA-Public Use
  Company Number: PHHY2014TR055669

PATIENT
  Age: 11 Year
  Sex: Male

DRUGS (5)
  1. ICL670A [Suspect]
     Indication: THALASSAEMIA BETA
     Dosage: 32.6 MG, UNK
     Route: 048
     Dates: start: 20120118
  2. ICL670A [Suspect]
     Dosage: UNK
     Route: 048
     Dates: start: 20130311, end: 20130329
  3. ICL670A [Suspect]
     Dosage: UNK
     Dates: end: 20130410
  4. ICL670A [Suspect]
     Dosage: UNK
     Route: 048
     Dates: start: 20130612, end: 20130626
  5. ICL670A [Suspect]
     Dosage: UNK

REACTIONS (2)
  - Paralysis [Recovered/Resolved]
  - Cardiac murmur [Recovered/Resolved]
